FAERS Safety Report 4556803-6 (Version None)
Quarter: 2005Q1

REPORT INFORMATION
  Report Type: 
  Country: None (occurrence: None)
  Receive Date: 20050118
  Receipt Date: 20050110
  Transmission Date: 20050727
  Serious: Yes (Other)
  Sender: FDA-Public Use
  Company Number: S04-USA-07916-01

PATIENT
  Age: 55 Year
  Sex: Female

DRUGS (3)
  1. LEXAPRO [Suspect]
     Dates: start: 20041203
  2. ATIVAN [Concomitant]
  3. ANTIHYPERTENSIVE (NOS) [Concomitant]

REACTIONS (4)
  - RASH GENERALISED [None]
  - SKIN BURNING SENSATION [None]
  - STEVENS-JOHNSON SYNDROME [None]
  - VASCULITIS [None]
